FAERS Safety Report 7514259-5 (Version None)
Quarter: 2011Q2

REPORT INFORMATION
  Report Type: 
  Country: None (occurrence: None)
  Receive Date: 20110601
  Receipt Date: 20110524
  Transmission Date: 20111010
  Serious: Yes (Other)
  Sender: FDA-Public Use
  Company Number: CA-BRISTOL-MYERS SQUIBB COMPANY-15773427

PATIENT
  Age: 59 Year
  Sex: Male

DRUGS (14)
  1. DILAUDID [Concomitant]
     Dates: start: 20110301
  2. MS CONTIN [Concomitant]
     Dates: start: 20110301
  3. DEXAMETHASONE [Concomitant]
     Dates: start: 20110301
  4. ZOPICLONE [Concomitant]
     Dates: start: 20110208
  5. NYSTATIN [Concomitant]
     Dates: start: 20110501
  6. CISPLATIN [Suspect]
     Indication: NON-SMALL CELL LUNG CANCER
     Route: 042
     Dates: start: 20110412
  7. VINORELBINE [Suspect]
     Indication: NON-SMALL CELL LUNG CANCER
     Route: 042
     Dates: start: 20110412
  8. ATIVAN [Concomitant]
     Dates: start: 20110501
  9. LIPITOR [Concomitant]
     Dates: start: 20110107
  10. COLACE [Concomitant]
     Dates: start: 20110401
  11. ERBITUX [Suspect]
     Indication: NON-SMALL CELL LUNG CANCER
     Route: 042
     Dates: start: 20110412
  12. LYRICA [Concomitant]
     Dates: start: 20110301
  13. SENOKOT [Concomitant]
     Dates: start: 20110301
  14. PANTOLOC [Concomitant]
     Dates: start: 20110401

REACTIONS (1)
  - PULMONARY EMBOLISM [None]
